FAERS Safety Report 25124045 (Version 1)
Quarter: 2025Q1

REPORT INFORMATION
  Report Type: Spontaneous
  Country: US (occurrence: US)
  Receive Date: 20250326
  Receipt Date: 20250326
  Transmission Date: 20250408
  Serious: No
  Sender: SANOFI AVENTIS
  Company Number: US-SA-2025SA086793

PATIENT
  Age: 66 Year
  Sex: Female
  Weight: 81.18 kg

DRUGS (5)
  1. KEVZARA [Suspect]
     Active Substance: SARILUMAB
     Indication: Polymyalgia rheumatica
     Dosage: 200 MG, QOW
     Route: 058
     Dates: start: 20250111
  2. LYRICA [Concomitant]
     Active Substance: PREGABALIN
  3. TYLENOL [Concomitant]
     Active Substance: ACETAMINOPHEN
  4. MEDROL [Concomitant]
     Active Substance: METHYLPREDNISOLONE
  5. IBUPROFEN [Concomitant]
     Active Substance: IBUPROFEN

REACTIONS (4)
  - Fall [Unknown]
  - Rotator cuff syndrome [Unknown]
  - Neck pain [Unknown]
  - Neck injury [Unknown]

NARRATIVE: CASE EVENT DATE: 20250101
